FAERS Safety Report 19892506 (Version 2)
Quarter: 2021Q4

REPORT INFORMATION
  Report Type: Spontaneous
  Country: US (occurrence: None)
  Receive Date: 20210928
  Receipt Date: 20211118
  Transmission Date: 20220303
  Serious: No
  Sender: FDA-Public Use
  Company Number: 2021A727469

PATIENT
  Sex: Female

DRUGS (2)
  1. BYDUREON BCISE [Suspect]
     Active Substance: EXENATIDE
     Indication: Glycosylated haemoglobin increased
     Route: 058
     Dates: start: 202108
  2. FARXIGA [Concomitant]
     Active Substance: DAPAGLIFLOZIN PROPANEDIOL
     Indication: Glycosylated haemoglobin increased

REACTIONS (5)
  - Contusion [Not Recovered/Not Resolved]
  - Injection site injury [Unknown]
  - Device issue [Unknown]
  - Needle issue [Unknown]
  - Needle issue [Unknown]
